FAERS Safety Report 4744385-5 (Version None)
Quarter: 2005Q3

REPORT INFORMATION
  Report Type: 
  Country: None (occurrence: None)
  Receive Date: 20050811
  Receipt Date: 20050811
  Transmission Date: 20060218
  Serious: Yes (Hospitalization)
  Sender: FDA-Public Use
  Company Number: None

PATIENT
  Age: 71 Year
  Sex: Male
  Weight: 87.1 kg

DRUGS (1)
  1. REOPRO [Suspect]
     Indication: CORONARY ANGIOPLASTY
     Dosage: 22 MG IVP, THEN 0.6 MG/HR  1430-2300
     Route: 042
     Dates: start: 20050706

REACTIONS (3)
  - NEUTROPENIA [None]
  - POST PROCEDURAL COMPLICATION [None]
  - THROMBOCYTOPENIA [None]
